FAERS Safety Report 14095309 (Version 2)
Quarter: 2017Q4

REPORT INFORMATION
  Report Type: Report from Study
  Country: US (occurrence: US)
  Receive Date: 20171016
  Receipt Date: 20171102
  Transmission Date: 20180321
  Serious: Yes (Death, Other)
  Sender: FDA-Public Use
  Company Number: US-SA-2017SA199439

PATIENT
  Age: 29 Year
  Sex: Female

DRUGS (2)
  1. LEMTRADA [Suspect]
     Active Substance: ALEMTUZUMAB
     Route: 041
     Dates: start: 20150902, end: 20150909
  2. LEMTRADA [Suspect]
     Active Substance: ALEMTUZUMAB
     Route: 041
     Dates: start: 20160921, end: 20160923

REACTIONS (7)
  - Intracranial venous sinus thrombosis [Fatal]
  - Ischaemic stroke [Fatal]
  - Brain herniation [Fatal]
  - Haemorrhagic transformation stroke [Fatal]
  - Loss of consciousness [Fatal]
  - Thrombocytopenia [Recovered/Resolved]
  - Headache [Fatal]

NARRATIVE: CASE EVENT DATE: 201709
